FAERS Safety Report 9324200 (Version 1)
Quarter: 2013Q2

REPORT INFORMATION
  Report Type: Spontaneous
  Country: ES (occurrence: ES)
  Receive Date: 20130603
  Receipt Date: 20130603
  Transmission Date: 20140414
  Serious: Yes (Other)
  Sender: FDA-Public Use
  Company Number: ES-ELI_LILLY_AND_COMPANY-ES201305006587

PATIENT
  Age: 83 Year
  Sex: Male
  Weight: 63 kg

DRUGS (5)
  1. ALIMTA [Suspect]
     Indication: LUNG NEOPLASM MALIGNANT
     Dosage: 1 DF, EVERY 3 WEEKS
     Route: 042
     Dates: start: 20130516
  2. METFORMINA [Concomitant]
     Indication: DIABETES MELLITUS
     Dosage: 850 MG, QD
     Route: 048
  3. ACFOL [Concomitant]
     Indication: ADJUVANT THERAPY
     Dosage: 5 MG, QD
  4. FORTECORTIN [Concomitant]
     Indication: ADJUVANT THERAPY
     Dosage: 4 MG, QD
     Dates: start: 20130515
  5. OMEPRAZOL [Concomitant]
     Dosage: 20 MG, QD
     Route: 048

REACTIONS (3)
  - Pyrexia [Not Recovered/Not Resolved]
  - Cough [Not Recovered/Not Resolved]
  - Sputum purulent [Not Recovered/Not Resolved]
